FAERS Safety Report 5922607-2 (Version None)
Quarter: 2008Q4

REPORT INFORMATION
  Report Type: 
  Country: None (occurrence: None)
  Receive Date: 20081017
  Receipt Date: 20081009
  Transmission Date: 20090506
  Serious: Yes (Other)
  Sender: FDA-Public Use
  Company Number: PHEH2008US08955

PATIENT
  Sex: Female

DRUGS (8)
  1. TEKTURNA [Suspect]
  2. PREDNISONE TAB [Concomitant]
  3. ASPIRIN [Concomitant]
  4. FOLIC ACID [Concomitant]
  5. METHOTREXATE [Concomitant]
  6. HYDROCHLOROTHIAZIDE [Concomitant]
  7. METOPROLOL TARTRATE [Concomitant]
  8. POTASSIUM CHLORIDE [Concomitant]

REACTIONS (5)
  - BLOOD SODIUM DECREASED [None]
  - CONVULSION [None]
  - DIZZINESS [None]
  - HYPERTENSION [None]
  - LOSS OF CONSCIOUSNESS [None]
